FAERS Safety Report 23727174 (Version 1)
Quarter: 2024Q2

REPORT INFORMATION
  Report Type: Spontaneous
  Country: GB (occurrence: GB)
  Receive Date: 20240410
  Receipt Date: 20240410
  Transmission Date: 20240716
  Serious: Yes (Death, Hospitalization, Other)
  Sender: FDA-Public Use
  Company Number: GB-EXELIXIS-CABO-24076090

PATIENT
  Sex: Male
  Weight: 81 kg

DRUGS (3)
  1. CABOMETYX [Suspect]
     Active Substance: CABOZANTINIB S-MALATE
     Indication: Metastatic renal cell carcinoma
     Dosage: UNK
  2. NIVOLUMAB [Suspect]
     Active Substance: NIVOLUMAB
     Indication: Product used for unknown indication
     Dosage: 480 MG, Q4WEEKS
     Dates: start: 20231002, end: 20231030
  3. RITUXIMAB [Concomitant]
     Active Substance: RITUXIMAB
     Indication: Product used for unknown indication
     Dosage: UNK
     Dates: start: 20231002, end: 20231004

REACTIONS (3)
  - Muscular weakness [Fatal]
  - Cerebrovascular accident [Fatal]
  - Renal cancer metastatic [Fatal]

NARRATIVE: CASE EVENT DATE: 20231208
